FAERS Safety Report 21921093 (Version 2)
Quarter: 2023Q1

REPORT INFORMATION
  Report Type: Spontaneous
  Country: US (occurrence: US)
  Receive Date: 20230127
  Receipt Date: 20230208
  Transmission Date: 20230418
  Serious: Yes (Hospitalization, Other)
  Sender: FDA-Public Use
  Company Number: US-PFIZER INC-202300036161

PATIENT
  Age: 62 Year
  Sex: Male
  Weight: 87.54 kg

DRUGS (1)
  1. INLYTA [Suspect]
     Active Substance: AXITINIB
     Indication: Metastatic renal cell carcinoma
     Dosage: 5 MG, 2X/DAY
     Route: 048
     Dates: start: 202210, end: 2022

REACTIONS (1)
  - Addison^s disease [Recovered/Resolved with Sequelae]

NARRATIVE: CASE EVENT DATE: 20230112
